FAERS Safety Report 6863369-4 (Version None)
Quarter: 2010Q3

REPORT INFORMATION
  Report Type: 
  Country: None (occurrence: None)
  Receive Date: 20100721
  Receipt Date: 20100713
  Transmission Date: 20110219
  Serious: Yes (Other)
  Sender: FDA-Public Use
  Company Number: KR-JNJFOC-20100604074

PATIENT
  Sex: Female
  Weight: 75.9 kg

DRUGS (7)
  1. PALIPERIDONE PALMITATE [Suspect]
     Indication: SCHIZOPHRENIA
     Route: 030
  2. VALPROATE SODIUM [Concomitant]
     Indication: SCHIZOPHRENIA
  3. PROPRANOLOL HYDROCHLORIDE [Concomitant]
     Indication: PROPHYLAXIS
  4. ESCITALOPRAM OXALATE [Concomitant]
     Indication: DEPRESSION
  5. PROCYCLIDINE HYDROCHLORIDE [Concomitant]
     Indication: PROPHYLAXIS
  6. DOMPERIDONE MALEATE [Concomitant]
     Indication: PROPHYLAXIS
  7. ZOLPIDEM TARTRATE [Concomitant]
     Indication: INSOMNIA

REACTIONS (2)
  - ALANINE AMINOTRANSFERASE INCREASED [None]
  - ASPARTATE AMINOTRANSFERASE INCREASED [None]
